FAERS Safety Report 9133514 (Version 2)
Quarter: 2013Q1

REPORT INFORMATION
  Report Type: Spontaneous
  Country: US (occurrence: US)
  Receive Date: 20130301
  Receipt Date: 20130306
  Transmission Date: 20140127
  Serious: Yes (Hospitalization, Other)
  Sender: FDA-Public Use
  Company Number: US-PFIZER INC-2013069327

PATIENT
  Age: 26 Year
  Sex: Female

DRUGS (3)
  1. PHENYTOIN [Suspect]
     Indication: CONVULSION
     Dosage: UNK
  2. PRIMIDONE [Suspect]
     Indication: CONVULSION
     Dosage: UNK
  3. PHENOBARBITAL [Suspect]
     Indication: CONVULSION
     Dosage: UNK

REACTIONS (10)
  - Intentional overdose [Unknown]
  - Ataxia [Recovered/Resolved]
  - Dysarthria [Recovered/Resolved]
  - Ophthalmoplegia [Recovered/Resolved]
  - Agitation [Recovered/Resolved]
  - Toxicity to various agents [Recovered/Resolved]
  - Periorbital oedema [Recovered/Resolved]
  - Nystagmus [Recovered/Resolved]
  - Bell^s phenomenon [Recovered/Resolved]
  - Altered state of consciousness [Recovered/Resolved]
